FAERS Safety Report 16114671 (Version 1)
Quarter: 2019Q1

REPORT INFORMATION
  Report Type: Spontaneous
  Country: FR (occurrence: FR)
  Receive Date: 20190325
  Receipt Date: 20190325
  Transmission Date: 20190418
  Serious: Yes (Other)
  Sender: FDA-Public Use
  Company Number: FR-PFIZER INC-2019123719

PATIENT
  Age: 13 Month
  Sex: Male
  Weight: 9 kg

DRUGS (9)
  1. VOGALENE [Concomitant]
     Active Substance: METOPIMAZINE
     Dosage: UNK
  2. ZOPHREN [ONDANSETRON] [Concomitant]
     Active Substance: ONDANSETRON
     Dosage: UNK
  3. COSMEGEN [Concomitant]
     Active Substance: DACTINOMYCIN
     Dosage: UNK
  4. BACTRIM [Concomitant]
     Active Substance: SULFAMETHOXAZOLE\TRIMETHOPRIM
     Dosage: UNK
  5. RIVOTRIL [Concomitant]
     Active Substance: CLONAZEPAM
     Dosage: UNK
  6. FORLAX [Concomitant]
     Active Substance: POLYETHYLENE GLYCOL 4000
     Dosage: UNK
  7. VINCRISTINE HOSPIRA [Suspect]
     Active Substance: VINCRISTINE
     Indication: RHABDOMYOSARCOMA
     Dosage: 0.65 MG, UNK ( EVERY 21 DAYS (5 DOSES, VARIABLE DOSES))
     Route: 041
     Dates: start: 20160726, end: 20160927
  8. FUNGIZONE [Concomitant]
     Active Substance: AMPHOTERICIN B
     Dosage: UNK
  9. IFOSFAMIDE EG [Concomitant]
     Active Substance: IFOSFAMIDE
     Dosage: UNK

REACTIONS (1)
  - Eyelid ptosis [Recovering/Resolving]

NARRATIVE: CASE EVENT DATE: 201608
